FAERS Safety Report 5603955-2 (Version None)
Quarter: 2008Q1

REPORT INFORMATION
  Report Type: 
  Country: None (occurrence: None)
  Receive Date: 20080124
  Receipt Date: 20080124
  Transmission Date: 20080703
  Serious: Yes (Death, Hospitalization)
  Sender: FDA-Public Use
  Company Number: None

PATIENT
  Sex: Female
  Weight: 64 kg

DRUGS (2)
  1. MELPHALAN /MC0482/CYCLE 3 [Suspect]
     Indication: AMYLOIDOSIS
     Dosage: 34 MG 1 X 6 WEEKS IV
     Route: 042
     Dates: start: 20071003, end: 20071226
  2. DEXAMETHASONE TAB [Suspect]
     Indication: AMYLOIDOSIS
     Dosage: 40 MG DAY 1-4 + 22-25 PO
     Route: 048
     Dates: start: 20071003, end: 20071229

REACTIONS (9)
  - ATRIAL THROMBOSIS [None]
  - CONDITION AGGRAVATED [None]
  - MULTI-ORGAN FAILURE [None]
  - NEUTROPENIC SEPSIS [None]
  - PNEUMONIA [None]
  - PULMONARY EMBOLISM [None]
  - PYREXIA [None]
  - RENAL FAILURE CHRONIC [None]
  - RESPIRATORY FAILURE [None]
